FAERS Safety Report 20718610 (Version 1)
Quarter: 2022Q2

REPORT INFORMATION
  Report Type: Spontaneous
  Country: US (occurrence: None)
  Receive Date: 20220418
  Receipt Date: 20220418
  Transmission Date: 20220721
  Serious: No
  Sender: FDA-Public Use
  Company Number: US-SUPERNUS Pharmaceuticals, Inc.-SUP202202-000261

PATIENT
  Age: 12 Year
  Sex: Female
  Weight: 47.1 kg

DRUGS (3)
  1. QELBREE [Suspect]
     Active Substance: VILOXAZINE HYDROCHLORIDE
     Indication: Attention deficit hyperactivity disorder
     Dates: start: 20220204
  2. PROZAC [Concomitant]
     Active Substance: FLUOXETINE HYDROCHLORIDE
     Dosage: 10MG
  3. GUANFACINE [Concomitant]
     Active Substance: GUANFACINE
     Dosage: 2MG

REACTIONS (3)
  - Affect lability [Unknown]
  - Anger [Unknown]
  - Fatigue [Unknown]

NARRATIVE: CASE EVENT DATE: 20220204
